FAERS Safety Report 9433284 (Version 1)
Quarter: 2013Q3

REPORT INFORMATION
  Report Type: Spontaneous
  Country: US (occurrence: US)
  Receive Date: 20130731
  Receipt Date: 20130731
  Transmission Date: 20140515
  Serious: Yes (Hospitalization, Other)
  Sender: FDA-Public Use
  Company Number: US-ELI_LILLY_AND_COMPANY-US201307008393

PATIENT
  Age: 25 Year
  Sex: Female
  Weight: 49.88 kg

DRUGS (1)
  1. HUMALOG LISPRO [Suspect]

REACTIONS (1)
  - Blood glucose increased [Recovering/Resolving]
